FAERS Safety Report 21540173 (Version 1)
Quarter: 2022Q4

REPORT INFORMATION
  Report Type: Report from Study
  Country: US (occurrence: None)
  Receive Date: 20221102
  Receipt Date: 20221102
  Transmission Date: 20230112
  Serious: Yes (Hospitalization)
  Sender: FDA-Public Use
  Company Number: US-ROCHE-3208475

PATIENT
  Age: 63 Year
  Sex: Male
  Weight: 63.8 kg

DRUGS (3)
  1. ATEZOLIZUMAB [Suspect]
     Active Substance: ATEZOLIZUMAB
     Indication: Small cell lung cancer
     Route: 041
     Dates: start: 20220404
  2. CISPLATIN [Suspect]
     Active Substance: CISPLATIN
     Indication: Small cell lung cancer
     Dosage: MOST RECENT DOSE OF CISPLATIN (106 MG) WAS ON 04/APR/2022
     Route: 042
     Dates: start: 20220311
  3. ETOPOSIDE [Suspect]
     Active Substance: ETOPOSIDE
     Indication: Small cell lung cancer
     Dosage: ON DAYS 1-3?MOST RECENT DOSE OF ETOPOSIDE (180 MG) WAS ON 06/APR/2022.
     Route: 042
     Dates: start: 20220311

REACTIONS (3)
  - Dehydration [Recovering/Resolving]
  - Hypoxia [Recovering/Resolving]
  - Pneumonitis [Recovering/Resolving]

NARRATIVE: CASE EVENT DATE: 20220430
